FAERS Safety Report 12795136 (Version 3)
Quarter: 2016Q4

REPORT INFORMATION
  Report Type: Report from Study
  Country: DE (occurrence: DE)
  Receive Date: 20160929
  Receipt Date: 20161213
  Transmission Date: 20170207
  Serious: Yes (Hospitalization)
  Sender: FDA-Public Use
  Company Number: DE-CELGENEUS-DEU-2016093762

PATIENT
  Age: 50 Year
  Sex: Female
  Weight: 94 kg

DRUGS (8)
  1. HTC [Concomitant]
     Indication: PRODUCT USED FOR UNKNOWN INDICATION
     Route: 065
     Dates: start: 2010
  2. NEULASTA [Concomitant]
     Active Substance: PEGFILGRASTIM
     Indication: PRODUCT USED FOR UNKNOWN INDICATION
     Route: 065
     Dates: start: 20161014
  3. ABRAXANE [Suspect]
     Active Substance: PACLITAXEL
     Dosage: 330 MG/M2
     Route: 041
     Dates: end: 20160929
  4. EMEND [Concomitant]
     Active Substance: APREPITANT
     Indication: PRODUCT USED FOR UNKNOWN INDICATION
     Dosage: 125/80
     Route: 065
     Dates: start: 20160721, end: 20160820
  5. ABRAXANE [Suspect]
     Active Substance: PACLITAXEL
     Indication: BREAST CANCER
     Dosage: 330 MG/M2
     Route: 041
     Dates: start: 20160901, end: 20160901
  6. EPIRUBICIN [Suspect]
     Active Substance: EPIRUBICIN
     Indication: BREAST CANCER
     Dosage: 150 MG/M2
     Route: 041
     Dates: start: 20160721, end: 20160818
  7. CYCLOPHOSPHAMIDE. [Suspect]
     Active Substance: CYCLOPHOSPHAMIDE
     Indication: BREAST CANCER
     Dosage: 2000 MG/M2
     Route: 041
     Dates: start: 20161013, end: 20161013
  8. METOPROLOL. [Concomitant]
     Active Substance: METOPROLOL
     Indication: PRODUCT USED FOR UNKNOWN INDICATION
     Dosage: 47.5
     Route: 065
     Dates: start: 2010

REACTIONS (5)
  - Mastitis [Recovered/Resolved]
  - Impaired healing [Recovered/Resolved]
  - Mastitis [Recovered/Resolved]
  - Breast necrosis [Recovered/Resolved]
  - Mastitis [Recovered/Resolved]

NARRATIVE: CASE EVENT DATE: 20160721
